FAERS Safety Report 6922792-X (Version None)
Quarter: 2010Q3

REPORT INFORMATION
  Report Type: 
  Country: None (occurrence: None)
  Receive Date: 20100813
  Receipt Date: 20100713
  Transmission Date: 20110219
  Serious: No
  Sender: FDA-Public Use
  Company Number: US-BAYER-201018267BCC

PATIENT
  Sex: Female

DRUGS (4)
  1. ALEVE (CAPLET) [Suspect]
     Indication: PALATAL DISORDER
     Dosage: CONSUMER TOOK FROM 2 TO 7 TABLETS PER DAY
     Route: 048
  2. ADVIL MIGRAINE LIQUI-GELS [Concomitant]
  3. ADVIL PM [Concomitant]
  4. ADVIL LIQUI-GELS [Concomitant]

REACTIONS (1)
  - ORAL PAIN [None]
